FAERS Safety Report 5967620-4 (Version None)
Quarter: 2008Q4

REPORT INFORMATION
  Report Type: 
  Country: None (occurrence: None)
  Receive Date: 20081126
  Receipt Date: 20081114
  Transmission Date: 20090506
  Serious: Yes (Hospitalization, Other)
  Sender: FDA-Public Use
  Company Number: PHEH2008US08730

PATIENT
  Sex: Female

DRUGS (9)
  1. EXELON [Suspect]
     Dosage: UNK
     Route: 062
     Dates: start: 20080924, end: 20080927
  2. LISINOPRIL [Concomitant]
  3. NORVASC [Concomitant]
  4. LEVOXYL [Concomitant]
  5. TUMS [Concomitant]
  6. METOPROLOL TARTRATE [Concomitant]
  7. DEPAKOTE [Concomitant]
  8. SEROQUEL [Concomitant]
  9. TRAZODONE HCL [Concomitant]

REACTIONS (14)
  - BLOOD CHLORIDE DECREASED [None]
  - BLOOD PRESSURE INCREASED [None]
  - CONFUSIONAL STATE [None]
  - DEHYDRATION [None]
  - DEMENTIA [None]
  - DYSPHONIA [None]
  - EYE DISORDER [None]
  - HYPONATRAEMIA [None]
  - INSOMNIA [None]
  - NAUSEA [None]
  - PARANOIA [None]
  - RED BLOOD CELLS URINE POSITIVE [None]
  - SPEECH DISORDER [None]
  - TACHYCARDIA [None]
